FAERS Safety Report 15488221 (Version 1)
Quarter: 2018Q4

REPORT INFORMATION
  Report Type: Spontaneous
  Country: US (occurrence: US)
  Receive Date: 20181003
  Receipt Date: 20181003
  Transmission Date: 20190205
  Serious: Yes (Hospitalization, Other)
  Sender: FDA-Public Use
  Company Number: None

PATIENT
  Age: 87 Year
  Sex: Male
  Weight: 64 kg

DRUGS (1)
  1. AMIODARONE [Suspect]
     Active Substance: AMIODARONE
     Indication: ATRIAL FIBRILLATION
     Route: 048
     Dates: start: 20180328, end: 20180814

REACTIONS (5)
  - Hepatic enzyme increased [None]
  - Respiratory failure [None]
  - Thyroid disorder [None]
  - International normalised ratio abnormal [None]
  - Interstitial lung disease [None]

NARRATIVE: CASE EVENT DATE: 20180814
